FAERS Safety Report 7459603-2 (Version None)
Quarter: 2011Q2

REPORT INFORMATION
  Report Type: 
  Country: None (occurrence: None)
  Receive Date: 20110505
  Receipt Date: 20110426
  Transmission Date: 20111010
  Serious: Yes (Other)
  Sender: FDA-Public Use
  Company Number: PHHY2011US35836

PATIENT
  Age: 38 Year
  Sex: Female

DRUGS (1)
  1. GILENYA [Suspect]
     Dosage: UNK

REACTIONS (6)
  - MYOCARDIAL INFARCTION [None]
  - ABDOMINAL DISTENSION [None]
  - DYSPEPSIA [None]
  - HEADACHE [None]
  - BACK PAIN [None]
  - CHEST PAIN [None]
